FAERS Safety Report 24785850 (Version 2)
Quarter: 2025Q3

REPORT INFORMATION
  Report Type: Spontaneous
  Country: US (occurrence: US)
  Receive Date: 20241229
  Receipt Date: 20250708
  Transmission Date: 20251021
  Serious: No
  Sender: SANOFI AVENTIS
  Company Number: US-SA-2024SA383136

PATIENT
  Age: 21 Year
  Sex: Male
  Weight: 29.03 kg

DRUGS (4)
  1. DUPIXENT [Suspect]
     Active Substance: DUPILUMAB
     Indication: Eosinophilic oesophagitis
     Dosage: 300 MG, QW
     Route: 058
  2. Ondansetron Odan [Concomitant]
  3. TERBINAFINE HYDROCHLORIDE [Concomitant]
     Active Substance: TERBINAFINE HYDROCHLORIDE
  4. IRON [Concomitant]
     Active Substance: IRON

REACTIONS (3)
  - Decreased appetite [Unknown]
  - Hypoaesthesia [Unknown]
  - Injection site pain [Unknown]
